FAERS Safety Report 12062700 (Version 1)
Quarter: 2016Q1

REPORT INFORMATION
  Report Type: Spontaneous
  Country: US (occurrence: US)
  Receive Date: 20160210
  Receipt Date: 20160210
  Transmission Date: 20160526
  Serious: No
  Sender: FDA-Public Use
  Company Number: US-ALLERGAN-1504911US

PATIENT
  Age: 38 Year
  Sex: Female
  Weight: 63.49 kg

DRUGS (11)
  1. LACTASE [Concomitant]
     Active Substance: LACTASE
     Dosage: UNKNOWN
  2. BOTOX [Suspect]
     Active Substance: ONABOTULINUMTOXINA
     Indication: SKIN WRINKLING
     Dosage: 80 UNITS, SINGLE
     Route: 030
     Dates: start: 20140815, end: 20141029
  3. MULTIVITAMIN [Concomitant]
     Active Substance: VITAMINS
     Dosage: UNKNOWN
  4. ADVAIR HFA [Concomitant]
     Active Substance: FLUTICASONE PROPIONATE\SALMETEROL XINAFOATE
     Indication: INHALATION THERAPY
     Dosage: UNKNOWN
  5. BOTOX [Suspect]
     Active Substance: ONABOTULINUMTOXINA
     Indication: MIGRAINE
     Dosage: 60 UNITS, SINGLE
     Route: 030
     Dates: start: 20140926, end: 20140926
  6. TOPAMAX [Concomitant]
     Active Substance: TOPIRAMATE
     Dosage: UNKNOWN
  7. VITAMIN D [Concomitant]
     Active Substance: CHOLECALCIFEROL
     Dosage: UNKNOWN
  8. ROBAXIN [Concomitant]
     Active Substance: METHOCARBAMOL
     Dosage: UNKNOWN
  9. BOTOX [Suspect]
     Active Substance: ONABOTULINUMTOXINA
     Dosage: 40 UNITS, SINGLE
     Route: 030
     Dates: start: 201411, end: 201411
  10. BOTOX [Suspect]
     Active Substance: ONABOTULINUMTOXINA
     Dosage: 100 UNITS, SINGLE
     Route: 030
  11. SINGULAIR [Concomitant]
     Active Substance: MONTELUKAST SODIUM
     Dosage: UNKNOWN

REACTIONS (7)
  - Staphylococcal infection [Unknown]
  - Off label use [Unknown]
  - Drug ineffective [Unknown]
  - Skin lesion [Not Recovered/Not Resolved]
  - Injection site rash [Not Recovered/Not Resolved]
  - Infection [Unknown]
  - Injection site cyst [Not Recovered/Not Resolved]

NARRATIVE: CASE EVENT DATE: 20140815
